FAERS Safety Report 8456058-6 (Version None)
Quarter: 2012Q2

REPORT INFORMATION
  Report Type: 
  Country: None (occurrence: None)
  Receive Date: 20120621
  Receipt Date: 20120613
  Transmission Date: 20120825
  Serious: Yes (Hospitalization)
  Sender: FDA-Public Use
  Company Number: PHHO2012FR008996

PATIENT
  Sex: Male
  Weight: 74 kg

DRUGS (4)
  1. CASODEX [Concomitant]
     Indication: PROSTATE CANCER
     Dosage: 50 MG, UNK
     Route: 048
     Dates: start: 20091207, end: 20100105
  2. LEUPROLIDE ACETATE [Concomitant]
     Indication: PROSTATE CANCER
     Dosage: 11 UNK, UNK
     Route: 058
     Dates: start: 20091214, end: 20091214
  3. RADIOTHERAPY [Suspect]
     Indication: PROSTATE CANCER
     Dosage: 2 UNK, UNK
     Dates: start: 20091214
  4. AFINITOR [Suspect]
     Indication: PROSTATE CANCER
     Dosage: 7.5 MG, UNK
     Route: 048
     Dates: start: 20091207

REACTIONS (1)
  - HYDRONEPHROSIS [None]
